FAERS Safety Report 5187756-8 (Version None)
Quarter: 2006Q4

REPORT INFORMATION
  Report Type: 
  Country: None (occurrence: None)
  Receive Date: 20061221
  Receipt Date: 20050610
  Transmission Date: 20070319
  Serious: No
  Sender: FDA-Public Use
  Company Number: 2005UW08989

PATIENT
  Age: 36 Year
  Sex: Male
  Weight: 97.7 kg

DRUGS (4)
  1. CRESTOR [Suspect]
     Route: 048
     Dates: start: 20040203, end: 20040310
  2. TRICOR [Concomitant]
     Route: 048
  3. FISH OIL [Concomitant]
     Route: 048
  4. ASPIRIN [Concomitant]
     Route: 048

REACTIONS (3)
  - HEPATIC ENZYME INCREASED [None]
  - HEPATIC STEATOSIS [None]
  - RHABDOMYOLYSIS [None]
